FAERS Safety Report 25942224 (Version 2)
Quarter: 2025Q4

REPORT INFORMATION
  Report Type: Spontaneous
  Country: JP (occurrence: JP)
  Receive Date: 20251020
  Receipt Date: 20251223
  Transmission Date: 20260118
  Serious: Yes (Other)
  Sender: BRISTOL-MYERS SQUIBB COMPANY
  Company Number: JP-BRISTOL-MYERS SQUIBB COMPANY-2025-140486

PATIENT

DRUGS (2)
  1. SOTYKTU [Suspect]
     Active Substance: DEUCRAVACITINIB
     Indication: Psoriasis
     Dosage: WHEN THE CONDITION IS BAD, THE PATIENT TAKES THE MEDICATION EVERY DAY.
     Route: 048
  2. SOTYKTU [Suspect]
     Active Substance: DEUCRAVACITINIB
     Dosage: WHEN THE CONDITION IS GOOD, THE PATIENT TAKES THE MEDICATION INTERMITTENTLY.
     Route: 048

REACTIONS (1)
  - Coronary artery occlusion [Unknown]
